FAERS Safety Report 9357904 (Version 1)
Quarter: 2013Q2

REPORT INFORMATION
  Report Type: Spontaneous
  Country: FR (occurrence: FR)
  Receive Date: 20130620
  Receipt Date: 20130620
  Transmission Date: 20140414
  Serious: Yes (Other)
  Sender: FDA-Public Use
  Company Number: FR-BRISTOL-MYERS SQUIBB COMPANY-19017367

PATIENT
  Age: 46 Year
  Sex: Female

DRUGS (3)
  1. REYATAZ [Suspect]
  2. NORVIR [Suspect]
  3. KIVEXA [Suspect]

REACTIONS (3)
  - Renal failure [Unknown]
  - Nephrolithiasis [Unknown]
  - Urinary tract infection [Unknown]
